FAERS Safety Report 18188431 (Version 1)
Quarter: 2020Q3

REPORT INFORMATION
  Report Type: Spontaneous
  Country: US (occurrence: US)
  Receive Date: 20200824
  Receipt Date: 20200824
  Transmission Date: 20201103
  Serious: Yes (Other)
  Sender: FDA-Public Use
  Company Number: US-ALVOGEN-2020-ALVOGEN-113921

PATIENT
  Age: 14 Year
  Sex: Female

DRUGS (1)
  1. MINOCYCLINE [Suspect]
     Active Substance: MINOCYCLINE HYDROCHLORIDE
     Indication: ACNE
     Route: 048

REACTIONS (7)
  - Tonsillar erythema [Unknown]
  - Drug reaction with eosinophilia and systemic symptoms [Unknown]
  - Transaminases increased [Unknown]
  - Acute kidney injury [Recovered/Resolved]
  - Drug-induced liver injury [Unknown]
  - Tubulointerstitial nephritis [Unknown]
  - Pruritus [Unknown]
